FAERS Safety Report 20839929 (Version 1)
Quarter: 2022Q2

REPORT INFORMATION
  Report Type: Spontaneous
  Country: US (occurrence: US)
  Receive Date: 20220517
  Receipt Date: 20220517
  Transmission Date: 20220721
  Serious: Yes (Other)
  Sender: FDA-Public Use
  Company Number: US-PFIZER INC-202200699769

PATIENT
  Age: 47 Year
  Sex: Male
  Weight: 68.04 kg

DRUGS (1)
  1. XANAX [Suspect]
     Active Substance: ALPRAZOLAM
     Dosage: UNK

REACTIONS (3)
  - Drug dependence [Unknown]
  - Off label use [Unknown]
  - Drug ineffective for unapproved indication [Unknown]
